FAERS Safety Report 9851021 (Version 1)
Quarter: 2014Q1

REPORT INFORMATION
  Report Type: Spontaneous
  Country: IT (occurrence: IT)
  Receive Date: 20140128
  Receipt Date: 20140128
  Transmission Date: 20141002
  Serious: Yes (Hospitalization)
  Sender: FDA-Public Use
  Company Number: PHHY2014IT008597

PATIENT
  Sex: Female

DRUGS (1)
  1. AMOXICILLIN-CLAVULANIC ACID [Suspect]
     Indication: NASOPHARYNGITIS
     Dates: start: 20131118, end: 20131125

REACTIONS (2)
  - Oedema peripheral [Unknown]
  - Urticaria [Unknown]
